FAERS Safety Report 4560823-5 (Version None)
Quarter: 2005Q1

REPORT INFORMATION
  Report Type: 
  Country: None (occurrence: None)
  Receive Date: 20050121
  Receipt Date: 20050112
  Transmission Date: 20050727
  Serious: Yes (Hospitalization)
  Sender: FDA-Public Use
  Company Number: 2004-10-0036

PATIENT
  Age: 36 Year
  Sex: Male

DRUGS (5)
  1. REBETOL [Suspect]
     Indication: HEPATITIS CHRONIC ACTIVE
     Dosage: 1200 MG QD ORAL
     Route: 048
     Dates: start: 20030117, end: 20030529
  2. PEGASYS [Suspect]
     Indication: HEPATITIS CHRONIC ACTIVE
     Dosage: 180 MCG QWK
     Dates: start: 20030117, end: 20030529
  3. STAVUDINE (DIDEHYDROTHYMIDINE) [Concomitant]
  4. LAMIVUDINE (3TC) [Concomitant]
  5. EFAVIRENZ [Concomitant]

REACTIONS (7)
  - CARDIAC PROCEDURE COMPLICATION [None]
  - CARDIAC TAMPONADE [None]
  - DRUG INTOLERANCE [None]
  - HEPATOSPLENOMEGALY [None]
  - PERICARDIAL HAEMORRHAGE [None]
  - PLEURAL EFFUSION [None]
  - UPPER RESPIRATORY TRACT INFECTION [None]
